FAERS Safety Report 8392021 (Version 7)
Quarter: 2012Q4

REPORT INFORMATION
  Report Type: Report from Study
  Country: MX (occurrence: MX)
  Receive Date: 20120206
  Receipt Date: 20120911
  Transmission Date: 20130627
  Serious: Yes (Life-Threatening, Hospitalization, Other)
  Sender: FDA-Public Use
  Company Number: MX-NOVOPROD-343774

PATIENT
  Age: 33 Year
  Sex: Female
  Weight: 80.9 kg

DRUGS (7)
  1. LIRAGLUTIDE FLEXPEN [Suspect]
     Indication: OBESITY
     Dosage: 0.6 mg, qd
     Route: 058
     Dates: start: 20110727
  2. LIRAGLUTIDE FLEXPEN [Suspect]
     Dosage: 1.2 mg, qd
     Route: 058
     Dates: start: 20120802
  3. LIRAGLUTIDE FLEXPEN [Suspect]
     Dosage: 1.8 mg, qd
     Route: 058
     Dates: start: 20110808
  4. LIRAGLUTIDE FLEXPEN [Suspect]
     Dosage: 2.4 mg, qd
     Route: 058
     Dates: start: 20110815
  5. LIRAGLUTIDE FLEXPEN [Suspect]
     Dosage: 3 mg, qd
     Route: 058
     Dates: start: 20110823, end: 20120129
  6. LIRAGLUTIDE FLEXPEN [Suspect]
     Dosage: 3 mg, qd
     Route: 058
     Dates: start: 20120203
  7. ESTROGEN [Concomitant]

REACTIONS (1)
  - Cholelithiasis [Recovered/Resolved]
